FAERS Safety Report 18934893 (Version 3)
Quarter: 2023Q2

REPORT INFORMATION
  Report Type: Spontaneous
  Country: US (occurrence: US)
  Receive Date: 20210224
  Receipt Date: 20230412
  Transmission Date: 20230721
  Serious: Yes (Other)
  Sender: FDA-Public Use
  Company Number: US-GILEAD-2021-0517983

PATIENT
  Age: 53 Year
  Sex: Female
  Weight: 74.83 kg

DRUGS (56)
  1. ATRIPLA [Suspect]
     Active Substance: EFAVIRENZ\EMTRICITABINE\TENOFOVIR DISOPROXIL FUMARATE
     Indication: HIV infection
     Dosage: UNK
     Route: 048
     Dates: start: 2008
  2. ATRIPLA [Suspect]
     Active Substance: EFAVIRENZ\EMTRICITABINE\TENOFOVIR DISOPROXIL FUMARATE
     Dosage: UNK
     Route: 048
     Dates: start: 201004, end: 201811
  3. ATRIPLA [Suspect]
     Active Substance: EFAVIRENZ\EMTRICITABINE\TENOFOVIR DISOPROXIL FUMARATE
     Dosage: UNK
     Route: 048
     Dates: start: 201004, end: 2017
  4. BIKTARVY [Concomitant]
     Active Substance: BICTEGRAVIR SODIUM\EMTRICITABINE\TENOFOVIR ALAFENAMIDE FUMARATE
  5. RANEXA [Concomitant]
     Active Substance: RANOLAZINE
  6. PREDNISONE [Concomitant]
     Active Substance: PREDNISONE
  7. DESCOVY [Concomitant]
     Active Substance: EMTRICITABINE\TENOFOVIR ALAFENAMIDE FUMARATE
  8. METHYLPREDNISOLONE [Concomitant]
     Active Substance: METHYLPREDNISOLONE
  9. PRAVASTATIN [Concomitant]
     Active Substance: PRAVASTATIN
  10. ESOMEPRAZOLE [Concomitant]
     Active Substance: ESOMEPRAZOLE
  11. COMBIVIR [Concomitant]
     Active Substance: LAMIVUDINE\ZIDOVUDINE
  12. INTELENCE [Concomitant]
     Active Substance: ETRAVIRINE
  13. SUSTIVA [Concomitant]
     Active Substance: EFAVIRENZ
  14. ALBUTEROL SULFATE [Concomitant]
     Active Substance: ALBUTEROL SULFATE
  15. ALLEGRA [Concomitant]
     Active Substance: FEXOFENADINE HYDROCHLORIDE
  16. ATORVASTATIN [Concomitant]
     Active Substance: ATORVASTATIN
  17. CETIRIZINE [Concomitant]
     Active Substance: CETIRIZINE HYDROCHLORIDE
  18. CHANTIX [Concomitant]
     Active Substance: VARENICLINE TARTRATE
  19. AZELASTINE [Concomitant]
     Active Substance: AZELASTINE
  20. BREO ELLIPTA [Concomitant]
     Active Substance: FLUTICASONE FUROATE\VILANTEROL TRIFENATATE
  21. ED A-HIST [Concomitant]
     Active Substance: CHLORPHENIRAMINE MALEATE\PHENYLEPHRINE HYDROCHLORIDE
  22. DYPHYLLINE [Concomitant]
     Active Substance: DYPHYLLINE
  23. CYCLOBENZAPRINE [Concomitant]
     Active Substance: CYCLOBENZAPRINE
  24. LEVOCETIRIZINE [Concomitant]
     Active Substance: LEVOCETIRIZINE
  25. FEXOFENADINE [Concomitant]
     Active Substance: FEXOFENADINE HYDROCHLORIDE
  26. LEVOTHYROXINE [Concomitant]
     Active Substance: LEVOTHYROXINE
  27. LOHIST [LORATADINE] [Concomitant]
  28. MONTELUKAST [Concomitant]
     Active Substance: MONTELUKAST SODIUM
  29. CHOLECALCIFEROL [Concomitant]
     Active Substance: CHOLECALCIFEROL
  30. NEXIUM I.V. [Concomitant]
     Active Substance: ESOMEPRAZOLE SODIUM
  31. MUCINEX [Concomitant]
     Active Substance: GUAIFENESIN
  32. LODRANE D [Concomitant]
     Active Substance: BROMPHENIRAMINE MALEATE\PSEUDOEPHEDRINE HYDROCHLORIDE
  33. POTASSIUM CHLORIDE [Concomitant]
     Active Substance: POTASSIUM CHLORIDE
  34. TRIAMCINOLONE [Concomitant]
     Active Substance: TRIAMCINOLONE
  35. BROMHEXINE [Concomitant]
     Active Substance: BROMHEXINE
  36. VITAMIN D NOS [Concomitant]
     Active Substance: VITAMIN D NOS
  37. HYDROXYZINE [Concomitant]
     Active Substance: HYDROXYZINE HYDROCHLORIDE
  38. TRELEGY ELLIPTA [Concomitant]
     Active Substance: FLUTICASONE FUROATE\UMECLIDINIUM BROMIDE\VILANTEROL TRIFENATATE
  39. LINZESS [Concomitant]
     Active Substance: LINACLOTIDE
  40. VALACYCLOVIR [Concomitant]
     Active Substance: VALACYCLOVIR HYDROCHLORIDE
  41. SIMVASTATIN [Concomitant]
     Active Substance: SIMVASTATIN
  42. USTELL [Concomitant]
     Active Substance: HYOSCYAMINE SULFATE\METHENAMINE\METHYLENE BLUE\PHENYL SALICYLATE\SODIUM PHOSPHATE, MONOBASIC, MONOHY
  43. PHENDIMETRAZINE [Concomitant]
     Active Substance: PHENDIMETRAZINE
  44. NOTUSS AC [Concomitant]
  45. NITROGLYCERIN [Concomitant]
     Active Substance: NITROGLYCERIN
  46. SUDATEX [Concomitant]
  47. ENDACOF C [Concomitant]
     Active Substance: CHLORPHENIRAMINE MALEATE\CODEINE PHOSPHATE
  48. TRAZODONE [Concomitant]
     Active Substance: TRAZODONE HYDROCHLORIDE
  49. PATANOL [Concomitant]
     Active Substance: OLOPATADINE HYDROCHLORIDE
  50. SEMPREX-D [Concomitant]
     Active Substance: ACRIVASTINE\PSEUDOEPHEDRINE HYDROCHLORIDE
  51. SINGULAIR [Concomitant]
     Active Substance: MONTELUKAST SODIUM
  52. OXYBUTYNIN [Concomitant]
     Active Substance: OXYBUTYNIN
  53. BETAMETHASONE [Concomitant]
     Active Substance: BETAMETHASONE
  54. PROMETHAZINE [Concomitant]
     Active Substance: PROMETHAZINE HYDROCHLORIDE
  55. FLUTICASONE PROPIONATE [Concomitant]
     Active Substance: FLUTICASONE PROPIONATE
  56. ZOLPIDEM [Concomitant]
     Active Substance: ZOLPIDEM TARTRATE

REACTIONS (15)
  - Ankle fracture [Unknown]
  - Wrist fracture [Not Recovered/Not Resolved]
  - Upper limb fracture [Unknown]
  - Osteopenia [Not Recovered/Not Resolved]
  - Pain [Not Recovered/Not Resolved]
  - Emotional distress [Not Recovered/Not Resolved]
  - Anxiety [Not Recovered/Not Resolved]
  - Anhedonia [Not Recovered/Not Resolved]
  - Neck pain [Unknown]
  - Depression [Not Recovered/Not Resolved]
  - Bacterial infection [Unknown]
  - Diarrhoea [Unknown]
  - Fungal infection [Unknown]
  - Intervertebral disc degeneration [Unknown]
  - Osteoarthritis [Unknown]

NARRATIVE: CASE EVENT DATE: 20110401
